FAERS Safety Report 19752063 (Version 1)
Quarter: 2021Q3

REPORT INFORMATION
  Report Type: Spontaneous
  Country: CN (occurrence: CN)
  Receive Date: 20210826
  Receipt Date: 20210826
  Transmission Date: 20211014
  Serious: Yes (Hospitalization, Other)
  Sender: FDA-Public Use
  Company Number: CN-ASTRAZENECA-2021A691336

PATIENT
  Age: 66 Year
  Sex: Female
  Weight: 51 kg

DRUGS (6)
  1. OSIMERTINIB MESYLATE. [Suspect]
     Active Substance: OSIMERTINIB MESYLATE
     Indication: ILL-DEFINED DISORDER
     Route: 048
     Dates: start: 20210111, end: 20210412
  2. BICYCLOL [Concomitant]
     Active Substance: BICYCLOL
     Indication: SYMPTOMATIC TREATMENT
     Route: 065
  3. POTASSIUM CHLORIDE. [Concomitant]
     Active Substance: POTASSIUM CHLORIDE
     Indication: SYMPTOMATIC TREATMENT
     Route: 065
  4. GLYCYRRHIZIN [Concomitant]
     Active Substance: GLYCYRRHIZIN
     Indication: LIVER DISORDER
     Route: 048
     Dates: start: 20210412, end: 20210805
  5. POTASSIUM CHLORIDE. [Concomitant]
     Active Substance: POTASSIUM CHLORIDE
     Indication: SYMPTOMATIC TREATMENT
     Route: 065
  6. OSIMERTINIB MESYLATE. [Suspect]
     Active Substance: OSIMERTINIB MESYLATE
     Indication: ILL-DEFINED DISORDER
     Route: 048
     Dates: start: 20210413, end: 20210805

REACTIONS (3)
  - Hypokalaemia [Recovering/Resolving]
  - Blood creatine phosphokinase increased [Recovering/Resolving]
  - Hepatic function abnormal [Unknown]

NARRATIVE: CASE EVENT DATE: 20210412
